FAERS Safety Report 4936561-3 (Version None)
Quarter: 2006Q1

REPORT INFORMATION
  Report Type: 
  Country: None (occurrence: None)
  Receive Date: 20060307
  Receipt Date: 20050421
  Transmission Date: 20060701
  Serious: Yes (Hospitalization)
  Sender: FDA-Public Use
  Company Number: US-MERCK-0504USA03915

PATIENT
  Age: 67 Year
  Sex: Male
  Weight: 50 kg

DRUGS (4)
  1. VIOXX [Suspect]
     Indication: ARTHRITIS
     Route: 048
     Dates: start: 19990101, end: 20040101
  2. VIOXX [Suspect]
     Route: 048
     Dates: start: 19990101, end: 20040101
  3. ADVIL [Concomitant]
     Route: 065
  4. TYLENOL (CAPLET) [Concomitant]
     Route: 065

REACTIONS (5)
  - ARTERIAL OCCLUSIVE DISEASE [None]
  - BLADDER NEOPLASM [None]
  - CARDIOVASCULAR DISORDER [None]
  - HERNIA [None]
  - MYOCARDIAL INFARCTION [None]
